FAERS Safety Report 8459538 (Version 2)
Quarter: 2014Q1

REPORT INFORMATION
  Report Type: Spontaneous
  Country: US (occurrence: US)
  Receive Date: 20120314
  Receipt Date: 20140212
  Transmission Date: 20141002
  Serious: Yes (Hospitalization, Other)
  Sender: FDA-Public Use
  Company Number: US-ASTRAZENECA-2011SE52267

PATIENT
  Age: 71 Year
  Sex: Female
  Weight: 90.7 kg

DRUGS (9)
  1. TOPROL XL [Suspect]
     Indication: HYPERTENSION
     Route: 048
     Dates: start: 2004, end: 2006
  2. TOPROL XL [Suspect]
     Indication: HYPERTENSION
     Dosage: GENERIC
     Route: 048
     Dates: start: 2006, end: 2006
  3. TOPROL XL [Suspect]
     Indication: HYPERTENSION
     Route: 048
     Dates: start: 2006, end: 2014
  4. TOPROL XL [Suspect]
     Indication: HYPERTENSION
     Route: 048
     Dates: start: 20140128
  5. LEVAQUIN [Suspect]
     Route: 065
     Dates: start: 2009
  6. DIABETA [Concomitant]
     Indication: TYPE 2 DIABETES MELLITUS
     Route: 048
     Dates: start: 2007
  7. NORVASC [Concomitant]
     Indication: HYPERTENSION
     Route: 048
  8. XANAX [Concomitant]
     Route: 065
  9. ULTRAVATE OINTMENT [Concomitant]
     Route: 065

REACTIONS (5)
  - Blood pressure fluctuation [Unknown]
  - Neoplasm malignant [Unknown]
  - Adverse drug reaction [Unknown]
  - Adverse event [Unknown]
  - Drug dose omission [Unknown]
